FAERS Safety Report 5399561-8 (Version None)
Quarter: 2007Q3

REPORT INFORMATION
  Report Type: 
  Country: None (occurrence: None)
  Receive Date: 20070727
  Receipt Date: 20070724
  Transmission Date: 20080115
  Serious: Yes (Life-Threatening, Other)
  Sender: FDA-Public Use
  Company Number: JP-ABBOTT-07P-087-0371721-00

PATIENT
  Age: 62 Year
  Sex: Female

DRUGS (19)
  1. SEVOFLURANE [Suspect]
     Indication: ANAESTHESIA
     Dosage: 1-5%
     Route: 055
     Dates: start: 20060924, end: 20060924
  2. SEVOFLURANE [Suspect]
     Indication: MAINTENANCE OF ANAESTHESIA
  3. DISOPYRAMIDE PHOSPHATE [Suspect]
     Indication: ARRHYTHMIA
     Route: 042
     Dates: start: 20060924, end: 20060924
  4. FENTANYL TRANSDERMAL SYSTEM [Concomitant]
     Indication: ANALGESIC THERAPY
     Route: 042
     Dates: start: 20060924, end: 20060924
  5. NITROUS OXIDE [Concomitant]
     Indication: ANAESTHESIA
     Dosage: UNKNOWN
     Route: 055
  6. THIAMYLAL SODIUM [Concomitant]
     Indication: INDUCTION OF ANAESTHESIA
     Route: 042
     Dates: start: 20060924, end: 20060924
  7. ATROPINE SULFATE [Concomitant]
     Indication: DRUG USE FOR UNKNOWN INDICATION
     Route: 042
     Dates: start: 20060924, end: 20060924
  8. ATROPINE SULFATE [Concomitant]
     Route: 042
     Dates: start: 20060924, end: 20060924
  9. SUXAMETHONIUM CHLORIDE [Concomitant]
     Indication: MUSCLE RELAXANT THERAPY
     Route: 042
     Dates: start: 20060924, end: 20060924
  10. DILTIAZEM HCL [Concomitant]
     Indication: DRUG USE FOR UNKNOWN INDICATION
     Route: 042
     Dates: start: 20060924, end: 20060924
  11. DILTIAZEM HCL [Concomitant]
     Route: 042
     Dates: start: 20060924, end: 20060924
  12. NICARDIPINE HYDROCHLORIDE [Concomitant]
     Indication: DRUG USE FOR UNKNOWN INDICATION
     Route: 042
     Dates: start: 20060924, end: 20060924
  13. LIDOCAINE [Concomitant]
     Indication: ARRHYTHMIA
     Route: 042
     Dates: start: 20060924, end: 20060924
  14. VERAPAMIL HYDROCHLORIDE [Concomitant]
     Indication: ARRHYTHMIA
     Route: 042
     Dates: start: 20060924, end: 20060924
  15. EPINEPHRINE [Concomitant]
     Indication: DRUG USE FOR UNKNOWN INDICATION
     Route: 042
     Dates: start: 20060924, end: 20060924
  16. VECURONIUM BROMIDE [Concomitant]
     Indication: MUSCLE RELAXANT THERAPY
     Route: 042
     Dates: start: 20060924, end: 20060924
  17. VECURONIUM BROMIDE [Concomitant]
     Route: 042
     Dates: start: 20060924, end: 20060924
  18. VECURONIUM BROMIDE [Concomitant]
     Route: 042
     Dates: start: 20060924, end: 20060924
  19. NEOSTIGMINE METHYLSULFATE [Concomitant]
     Indication: NEUROMUSCULAR BLOCKADE REVERSAL
     Route: 042
     Dates: start: 20060924, end: 20060924

REACTIONS (1)
  - TORSADE DE POINTES [None]
